FAERS Safety Report 7525197-6 (Version None)
Quarter: 2011Q2

REPORT INFORMATION
  Report Type: 
  Country: None (occurrence: None)
  Receive Date: 20110526
  Receipt Date: 20110513
  Transmission Date: 20111010
  Serious: Yes (Other)
  Sender: FDA-Public Use
  Company Number: TPA2011A02331

PATIENT
  Age: 57 Year
  Sex: Male

DRUGS (2)
  1. PLAVIX [Concomitant]
  2. DEXILANT [Suspect]
     Dosage: 60 MG, 1 IN 1 D, PER ORAL
     Route: 048
     Dates: start: 20110311

REACTIONS (1)
  - CORONARY ARTERY STENOSIS [None]
